FAERS Safety Report 6100162-4 (Version None)
Quarter: 2009Q1

REPORT INFORMATION
  Report Type: 
  Country: None (occurrence: None)
  Receive Date: 20090302
  Receipt Date: 20090302
  Transmission Date: 20090719
  Serious: Yes (Other)
  Sender: FDA-Public Use
  Company Number: None

PATIENT
  Age: 55 Year
  Sex: Female
  Weight: 90.7194 kg

DRUGS (5)
  1. BUPIVACAINE HYDROCHLORIDE [Suspect]
     Indication: ARTHROSCOPIC SURGERY
     Dosage: 30ML INJECTION
     Dates: start: 20080904, end: 20080904
  2. BUPIVACAINE HYDROCHLORIDE [Suspect]
     Indication: DEBRIDEMENT
     Dosage: 30ML INJECTION
     Dates: start: 20080904, end: 20080904
  3. EPINEPHRINE [Suspect]
     Dosage: 1ML AMPUL INJECTION INTRA-ARTICULAR
     Route: 014
     Dates: start: 20080904, end: 20080904
  4. BUPIVACAINE HYDROCHLORIDE [Concomitant]
  5. EPINEPHRINE [Concomitant]

REACTIONS (4)
  - CARTILAGE INJURY [None]
  - MUSCULOSKELETAL PAIN [None]
  - PERIARTHRITIS [None]
  - POST PROCEDURAL COMPLICATION [None]
